FAERS Safety Report 8319451-8 (Version None)
Quarter: 2012Q2

REPORT INFORMATION
  Report Type: 
  Country: None (occurrence: None)
  Receive Date: 20120427
  Receipt Date: 20120419
  Transmission Date: 20120825
  Serious: Yes (Death, Hospitalization, Other)
  Sender: FDA-Public Use
  Company Number: US-JNJFOC-20040604766

PATIENT
  Age: 30 Year
  Sex: Female

DRUGS (5)
  1. PAROXETINE [Suspect]
     Indication: SUICIDE ATTEMPT
  2. ACETAMINOPHEN [Suspect]
  3. IBUPROFEN [Suspect]
     Indication: SUICIDE ATTEMPT
  4. ACETAMINOPHEN [Suspect]
     Indication: SUICIDE ATTEMPT
  5. DIPHENHYDRAMINE HCL [Suspect]
     Indication: SUICIDE ATTEMPT

REACTIONS (7)
  - OVERDOSE [None]
  - METABOLIC ACIDOSIS [None]
  - COMPLETED SUICIDE [None]
  - HYPOTENSION [None]
  - HEPATIC FAILURE [None]
  - ELECTROCARDIOGRAM QT PROLONGED [None]
  - RESPIRATORY FAILURE [None]
